FAERS Safety Report 9972998 (Version 1)
Quarter: 2014Q1

REPORT INFORMATION
  Report Type: Spontaneous
  Country: GB (occurrence: GB)
  Receive Date: 20140306
  Receipt Date: 20140306
  Transmission Date: 20141002
  Serious: Yes (Hospitalization, Other)
  Sender: FDA-Public Use
  Company Number: GB-PFIZER INC-2014058766

PATIENT
  Age: 63 Year
  Sex: Female

DRUGS (7)
  1. SULFASALAZINE [Suspect]
     Indication: COLITIS ULCERATIVE
     Dosage: 1 G, 1X/DAY
  2. PREDNISOLONE [Concomitant]
     Indication: COLITIS ULCERATIVE
     Dosage: 60 MG, ALTERNATE DAY
  3. PREDNISOLONE [Concomitant]
     Dosage: 15 MG, ALTERNATE DAY
  4. PREDNISOLONE [Concomitant]
     Dosage: 10 MG, ALTERNATE DAY
  5. PREDNISOLONE [Concomitant]
     Dosage: 7.5 MG, ALTERNATE DAY
  6. PREDNISOLONE [Concomitant]
     Indication: COLITIS ULCERATIVE
     Dosage: UNK
     Route: 054
  7. FERROUS SULPHATE [Concomitant]
     Indication: COLITIS
     Dosage: UNK

REACTIONS (5)
  - Peripheral sensorimotor neuropathy [Recovering/Resolving]
  - Paraparesis [Recovering/Resolving]
  - Paraesthesia [Recovering/Resolving]
  - Muscular weakness [Recovering/Resolving]
  - Ataxia [Unknown]
